FAERS Safety Report 6163818-3 (Version None)
Quarter: 2009Q2

REPORT INFORMATION
  Report Type: 
  Country: None (occurrence: None)
  Receive Date: 20090420
  Receipt Date: 20090404
  Transmission Date: 20091009
  Serious: Yes (Hospitalization)
  Sender: FDA-Public Use
  Company Number: 2009002751

PATIENT
  Age: 65 Year
  Sex: Male
  Weight: 70 kg

DRUGS (5)
  1. TREANDA [Suspect]
     Indication: CHRONIC LYMPHOCYTIC LEUKAEMIA
     Dosage: 60 MG/M2 (60 MG/M2,1 IN 1 D),INTRAVENOUS
     Route: 042
     Dates: start: 20081105, end: 20081106
  2. RITUXIMAB(RITUXIMAB) [Suspect]
     Indication: CHRONIC LYMPHOCYTIC LEUKAEMIA
     Dates: start: 20081101
  3. GRANULOCYTE COLONY STIMULATING FACTOR(GRANULOCYTE COLONY STIMULATING F [Concomitant]
  4. INFLUENZA VACCINES (INFLUENZA VACCINES) [Concomitant]
  5. VACCINES(VACCINES) [Concomitant]

REACTIONS (10)
  - ANAEMIA HAEMOLYTIC AUTOIMMUNE [None]
  - BLOOD LACTATE DEHYDROGENASE INCREASED [None]
  - BLOOD POTASSIUM INCREASED [None]
  - COUGH [None]
  - DIARRHOEA [None]
  - DIZZINESS [None]
  - DYSPNOEA [None]
  - LEUKOPENIA [None]
  - PYREXIA [None]
  - URINARY TRACT INFECTION [None]
